FAERS Safety Report 7383929-4 (Version None)
Quarter: 2011Q1

REPORT INFORMATION
  Report Type: 
  Country: None (occurrence: None)
  Receive Date: 20110330
  Receipt Date: 20110325
  Transmission Date: 20110831
  Serious: Yes (Hospitalization)
  Sender: FDA-Public Use
  Company Number: CA-ABBOTT-11P-028-0712344-00

PATIENT
  Sex: Female
  Weight: 63.56 kg

DRUGS (2)
  1. COMBIVIR [Concomitant]
     Indication: ANTIRETROVIRAL THERAPY
     Dates: start: 20010101
  2. KALETRA [Suspect]
     Indication: ANTIRETROVIRAL THERAPY
     Dosage: 2- 200MG/50MG UNITS TWICE A DAY.
     Route: 048
     Dates: start: 20010701

REACTIONS (10)
  - SUICIDE ATTEMPT [None]
  - MAJOR DEPRESSION [None]
  - AFFECTIVE DISORDER [None]
  - SUICIDAL IDEATION [None]
  - DEPRESSION [None]
  - MEMORY IMPAIRMENT [None]
  - PSYCHOTIC DISORDER [None]
  - INTENTIONAL SELF-INJURY [None]
  - MUTISM [None]
  - PERSONALITY DISORDER [None]
